FAERS Safety Report 12327166 (Version 2)
Quarter: 2016Q3

REPORT INFORMATION
  Report Type: Report from Study
  Country: US (occurrence: US)
  Receive Date: 20160503
  Receipt Date: 20160705
  Transmission Date: 20161109
  Serious: Yes (Other)
  Sender: FDA-Public Use
  Company Number: US-BAYER-2016-080787

PATIENT
  Age: 71 Year
  Sex: Male

DRUGS (2)
  1. XOFIGO [Suspect]
     Active Substance: RADIUM RA-223 DICHLORIDE
     Indication: HORMONE-REFRACTORY PROSTATE CANCER
     Dosage: 94.70 ?CI
     Route: 042
     Dates: start: 20160328, end: 20160328
  2. XOFIGO [Suspect]
     Active Substance: RADIUM RA-223 DICHLORIDE
     Indication: METASTASES TO BONE
     Dosage: 99.10 ?CI, ONCE (EVERY 28 DAYS)
     Route: 042
     Dates: start: 20160523, end: 20160523

REACTIONS (2)
  - General physical health deterioration [None]
  - Blood count abnormal [None]

NARRATIVE: CASE EVENT DATE: 20160425
